FAERS Safety Report 7789885-9 (Version None)
Quarter: 2011Q3

REPORT INFORMATION
  Report Type: 
  Country: None (occurrence: None)
  Receive Date: 20110930
  Receipt Date: 20100907
  Transmission Date: 20111222
  Serious: Yes (Other)
  Sender: FDA-Public Use
  Company Number: US-ASTRAZENECA-2010SE42023

PATIENT
  Sex: Female

DRUGS (2)
  1. ARIMIDEX [Suspect]
     Indication: BREAST CANCER FEMALE
     Route: 048
     Dates: start: 20100609, end: 20100721
  2. AROMASIN [Suspect]
     Indication: BREAST CANCER FEMALE
     Route: 048
     Dates: start: 20100814

REACTIONS (5)
  - HYPERHIDROSIS [None]
  - PARAESTHESIA [None]
  - PRURITUS [None]
  - HOT FLUSH [None]
  - ARTHRALGIA [None]
